FAERS Safety Report 5006982-1 (Version None)
Quarter: 2006Q2

REPORT INFORMATION
  Report Type: 
  Country: None (occurrence: None)
  Receive Date: 20060517
  Receipt Date: 20060502
  Transmission Date: 20061013
  Serious: Yes (Hospitalization)
  Sender: FDA-Public Use
  Company Number: 2006-01149

PATIENT
  Age: 58 Year
  Sex: Male
  Weight: 92 kg

DRUGS (14)
  1. VELCADE [Suspect]
     Indication: MULTIPLE MYELOMA
     Dosage: 2.70 MG, INTRAVENOUS
     Route: 042
     Dates: start: 20060421
  2. CYCLOPHOSPHAMIDE [Suspect]
     Indication: MULTIPLE MYELOMA
     Dosage: 3360.00 MG, INTRAVENOUS
     Route: 042
     Dates: start: 20060421
  3. PANTOPRAZOLE SODIUM [Concomitant]
  4. ASPIRIN [Concomitant]
  5. ATORVASTATIN CALCIUM [Concomitant]
  6. ALLOPURINOL [Concomitant]
  7. COTRIM [Concomitant]
  8. AMPHO MORONAL (AMPHOTERCIN B) [Concomitant]
  9. NEBIVOLOL (NEBIVOLOL) [Concomitant]
  10. MICARDIS [Concomitant]
  11. DUROGESIC (FENTANYL) PATCH [Concomitant]
  12. NOVALGIN (METAMIZOLE SODIUM) [Concomitant]
  13. LACTULOSE [Concomitant]
  14. MOVICOL (SODIUM BICARBONATE, SODIUM CHLORIDE, MACROGOL, POTASSIUM CHLO [Concomitant]

REACTIONS (2)
  - INFECTION [None]
  - NEUTROPENIA [None]
